FAERS Safety Report 9089113 (Version 1)
Quarter: 2013Q1

REPORT INFORMATION
  Report Type: Spontaneous
  Country: IT (occurrence: IT)
  Receive Date: 20130131
  Receipt Date: 20130131
  Transmission Date: 20140127
  Serious: Yes (Hospitalization, Other)
  Sender: FDA-Public Use
  Company Number: PHHY2013IT007894

PATIENT
  Age: 67 Year
  Sex: Male

DRUGS (3)
  1. CARVEDILOL [Suspect]
     Dosage: 1 DF, QD
     Route: 048
     Dates: start: 20111225, end: 20121224
  2. AMLODIPINE [Suspect]
     Dosage: 1 DF, QD
     Route: 048
     Dates: start: 20111225, end: 20121224
  3. FUROSEMIDE [Suspect]
     Dosage: 0.5 DF, QD
     Route: 048
     Dates: start: 20111225, end: 20121224

REACTIONS (1)
  - Syncope [Not Recovered/Not Resolved]
